FAERS Safety Report 9405261 (Version 1)
Quarter: 2013Q3

REPORT INFORMATION
  Report Type: Spontaneous
  Country: FR (occurrence: FR)
  Receive Date: 20130717
  Receipt Date: 20130717
  Transmission Date: 20140515
  Serious: Yes (Hospitalization)
  Sender: FDA-Public Use
  Company Number: FR-TEVA-419180ISR

PATIENT
  Age: 80 Year
  Sex: Male

DRUGS (7)
  1. FUROSEMIDE TEVA 40 MG SCORED TABLET [Suspect]
     Indication: HYPERTENSION
     Dosage: 1 DOSAGE FORMS DAILY; LONG-TERM TREATMENT
     Route: 048
     Dates: end: 20130611
  2. PLAVIX 75 MG COATED TABLET [Concomitant]
     Dosage: 1 DOSAGE FORMS DAILY; LONG-TERM TREATMENT
     Route: 048
  3. TAHOR 10 MG [Concomitant]
     Dosage: 1 DOSAGE FORMS DAILY; LONG-TERM TREATMENT
     Route: 048
  4. SEROPRAM [Concomitant]
     Dosage: 1 DOSAGE FORMS DAILY; LONG-TERM TREATMENT
     Route: 048
  5. XATRAL [Concomitant]
     Dosage: 1 DOSAGE FORMS DAILY; LONG-TERM TREATMENT
     Route: 048
  6. ZYLORIC 100 MG [Concomitant]
     Dosage: 1 DOSAGE FORMS DAILY; LONG-TERM TREATMENT
     Route: 048
  7. SERETIDE 500 MG [Concomitant]
     Dosage: 2 DOSAGE FORMS DAILY; LONG-TERM TREATMENT
     Route: 055

REACTIONS (1)
  - Acute respiratory failure [Recovering/Resolving]
